FAERS Safety Report 9133888 (Version 1)
Quarter: 2013Q1

REPORT INFORMATION
  Report Type: Spontaneous
  Country: US (occurrence: US)
  Receive Date: 20130127
  Receipt Date: 20130127
  Transmission Date: 20140127
  Serious: No
  Sender: FDA-Public Use
  Company Number: US-009507513-1301USA008601

PATIENT
  Age: 21 Year
  Sex: Female
  Weight: 58.96 kg

DRUGS (2)
  1. NEXPLANON [Suspect]
     Indication: CONTRACEPTION
     Dosage: 1 DF, UNK
     Route: 059
     Dates: start: 20130104
  2. DIMETAPP (NEW FORMULA) [Concomitant]

REACTIONS (7)
  - Chills [Recovered/Resolved]
  - Hyperhidrosis [Recovered/Resolved]
  - Implant site erythema [Unknown]
  - Implant site swelling [Not Recovered/Not Resolved]
  - Influenza like illness [Recovered/Resolved]
  - Headache [Recovered/Resolved]
  - Pyrexia [Recovered/Resolved]
